FAERS Safety Report 13287604 (Version 1)
Quarter: 2017Q1

REPORT INFORMATION
  Report Type: Spontaneous
  Country: US (occurrence: US)
  Receive Date: 20170302
  Receipt Date: 20170302
  Transmission Date: 20170428
  Serious: No
  Sender: FDA-Public Use
  Company Number: ALCN2017US001701

PATIENT
  Sex: Male

DRUGS (1)
  1. EYESCRUB [Suspect]
     Active Substance: COSMETICS
     Indication: DRY EYE
     Dosage: UNK
     Route: 047
     Dates: start: 201702, end: 20170228

REACTIONS (1)
  - Eye swelling [Not Recovered/Not Resolved]

NARRATIVE: CASE EVENT DATE: 20170228
